FAERS Safety Report 8541860-2 (Version None)
Quarter: 2012Q3

REPORT INFORMATION
  Report Type: 
  Country: None (occurrence: None)
  Receive Date: 20120726
  Receipt Date: 20110908
  Transmission Date: 20120928
  Serious: No
  Sender: FDA-Public Use
  Company Number: US-ASTRAZENECA-2011SE54003

PATIENT
  Age: 55 Year
  Sex: Female
  Weight: 57.6 kg

DRUGS (3)
  1. BLOOD PRESSURE PILLS [Concomitant]
  2. SEROQUEL XR [Suspect]
     Indication: SLEEP DISORDER
     Route: 048
  3. HIV MEDICATION [Concomitant]

REACTIONS (9)
  - HEADACHE [None]
  - NERVOUSNESS [None]
  - IMPAIRED WORK ABILITY [None]
  - SPEECH DISORDER [None]
  - GAIT DISTURBANCE [None]
  - DRUG DOSE OMISSION [None]
  - DIZZINESS [None]
  - OFF LABEL USE [None]
  - DYSKINESIA [None]
